FAERS Safety Report 8589282 (Version 3)
Quarter: 2012Q4

REPORT INFORMATION
  Report Type: 
  Country: GR (occurrence: GR)
  Receive Date: 20120531
  Receipt Date: 20120928
  Transmission Date: 20130627
  Serious: Yes (Death, Hospitalization)
  Sender: FDA-Public Use
  Company Number: GR-BAXTER-2012BAX004125

PATIENT
  Age: 65 Year
  Sex: Female
  Weight: 75 kg

DRUGS (7)
  1. HUMAN ALBUMIN [Suspect]
     Indication: HYPOALBUMINEMIA
     Route: 042
     Dates: start: 20120217, end: 20120219
  2. HUMAN ALBUMIN [Suspect]
     Route: 042
     Dates: start: 20120303, end: 20120306
  3. HUMAN ALBUMIN [Suspect]
     Route: 042
  4. HUMAN ALBUMIN [Suspect]
     Route: 042
  5. HUMAN ALBUMIN [Suspect]
     Route: 042
  6. COLISTIN [Concomitant]
     Indication: DRUG USE FOR UNKNOWN INDICATION
     Dosage: 3.10^6
     Route: 042
     Dates: start: 20120212, end: 20120227
  7. LINEZOLID [Concomitant]
     Indication: DRUG USE FOR UNKNOWN INDICATION
     Route: 042
     Dates: start: 20120225, end: 20120308

REACTIONS (3)
  - Respiratory failure [Fatal]
  - Rash [Recovered/Resolved]
  - Respiratory tract infection [None]
